FAERS Safety Report 24532849 (Version 1)
Quarter: 2024Q4

REPORT INFORMATION
  Report Type: Spontaneous
  Country: DE (occurrence: DE)
  Receive Date: 20241022
  Receipt Date: 20241022
  Transmission Date: 20250114
  Serious: Yes (Hospitalization, Other)
  Sender: ALEXION PHARMACEUTICALS
  Company Number: None

PATIENT
  Age: 47 Year
  Weight: 120 kg

DRUGS (6)
  1. TAGRISSO [Suspect]
     Active Substance: OSIMERTINIB
     Indication: Glioblastoma
     Dosage: OSIMERTINIB (DOSE UNCLEAR) 1-0-0
  2. TAGRISSO [Suspect]
     Active Substance: OSIMERTINIB
     Dosage: OSIMERTINIB (DOSE UNCLEAR) 1-0-0
  3. TAGRISSO [Suspect]
     Active Substance: OSIMERTINIB
     Dosage: OSIMERTINIB (DOSE UNCLEAR) 1-0-0
  4. TAGRISSO [Suspect]
     Active Substance: OSIMERTINIB
     Dosage: OSIMERTINIB (DOSE UNCLEAR) 1-0-0
  5. AVASTIN [Suspect]
     Active Substance: BEVACIZUMAB
     Indication: Glioblastoma
     Dosage: IV EVERY 14 DAYS
  6. AVASTIN [Suspect]
     Active Substance: BEVACIZUMAB
     Dosage: IV EVERY 14 DAYS

REACTIONS (4)
  - Respiratory failure [Recovered/Resolved with Sequelae]
  - Dyspnoea [Recovered/Resolved with Sequelae]
  - Pulmonary embolism [Recovered/Resolved with Sequelae]
  - Pneumonia [Recovered/Resolved with Sequelae]
